FAERS Safety Report 8130273-3 (Version None)
Quarter: 2012Q1

REPORT INFORMATION
  Report Type: 
  Country: None (occurrence: None)
  Receive Date: 20120210
  Receipt Date: 20120204
  Transmission Date: 20120608
  Serious: Yes (Other)
  Sender: FDA-Public Use
  Company Number: PHHY2012CA002025

PATIENT
  Sex: Female

DRUGS (1)
  1. GILENYA [Suspect]
     Indication: RELAPSING-REMITTING MULTIPLE SCLEROSIS
     Dosage: 0.5 MG, DAILY
     Route: 048
     Dates: start: 20111215

REACTIONS (4)
  - PAIN [None]
  - PALPITATIONS [None]
  - ARRHYTHMIA [None]
  - PAIN OF SKIN [None]
